FAERS Safety Report 16197581 (Version 6)
Quarter: 2020Q2

REPORT INFORMATION
  Report Type: Spontaneous
  Country: US (occurrence: US)
  Receive Date: 20190415
  Receipt Date: 20200519
  Transmission Date: 20200713
  Serious: Yes (Hospitalization, Other)
  Sender: FDA-Public Use
  Company Number: US-PFIZER INC-2018066924

PATIENT
  Age: 18 Year
  Sex: Female
  Weight: 91.63 kg

DRUGS (4)
  1. GENOTROPIN [Suspect]
     Active Substance: SOMATROPIN
     Indication: DUMPING SYNDROME
  2. GENOTROPIN [Suspect]
     Active Substance: SOMATROPIN
     Indication: PRADER-WILLI SYNDROME
  3. GENOTROPIN [Suspect]
     Active Substance: SOMATROPIN
     Indication: BLOOD GLUCOSE DECREASED
     Dosage: 1.6 ML, EVERY NIGHT
     Dates: start: 201509
  4. GENOTROPIN [Suspect]
     Active Substance: SOMATROPIN
     Indication: EPINEPHRINE DECREASED
     Dosage: UNK, 1X/DAY (1.6 EVERY NIGHT AT BEDTIME)
     Dates: start: 2015

REACTIONS (6)
  - Blood glucose decreased [Unknown]
  - Foot fracture [Unknown]
  - Seizure [Unknown]
  - Device issue [Unknown]
  - Product dose omission [Unknown]
  - Foaming at mouth [Unknown]

NARRATIVE: CASE EVENT DATE: 202003
